FAERS Safety Report 5472703-1 (Version None)
Quarter: 2007Q4

REPORT INFORMATION
  Report Type: 
  Country: None (occurrence: None)
  Receive Date: 20071001
  Receipt Date: 20060921
  Transmission Date: 20080405
  Serious: No
  Sender: FDA-Public Use
  Company Number: US-ASTRAZENECA-2006UW18513

PATIENT
  Age: 63 Year
  Sex: Female
  Weight: 90.7 kg

DRUGS (2)
  1. ARIMIDEX [Suspect]
     Indication: BREAST CANCER
     Route: 048
     Dates: start: 20040101
  2. EFFEXOR [Concomitant]
     Indication: DEPRESSION

REACTIONS (3)
  - DRY THROAT [None]
  - NERVOUSNESS [None]
  - PHARYNGOLARYNGEAL PAIN [None]
